FAERS Safety Report 5594699-4 (Version None)
Quarter: 2008Q1

REPORT INFORMATION
  Report Type: 
  Country: None (occurrence: None)
  Receive Date: 20080117
  Receipt Date: 20080108
  Transmission Date: 20080703
  Serious: Yes (Hospitalization, Other)
  Sender: FDA-Public Use
  Company Number: US-AMGEN-QUU244413

PATIENT
  Sex: Female

DRUGS (12)
  1. ENBREL [Suspect]
     Indication: RHEUMATOID ARTHRITIS
     Route: 058
     Dates: start: 20041119
  2. METHOTREXATE [Concomitant]
     Dates: start: 20070701
  3. NEURONTIN [Concomitant]
  4. NIFEDIPINE [Concomitant]
  5. LOPRESSOR [Concomitant]
  6. LIPITOR [Concomitant]
  7. LASIX [Concomitant]
  8. FOSAMAX [Concomitant]
  9. FENTANYL [Concomitant]
  10. OMEPRAZOLE [Concomitant]
  11. PREDNISONE TAB [Concomitant]
  12. PLAQUENIL [Concomitant]

REACTIONS (4)
  - ARTHRITIS [None]
  - FALL [None]
  - HUMERUS FRACTURE [None]
  - ROTATOR CUFF SYNDROME [None]
